FAERS Safety Report 25724356 (Version 1)
Quarter: 2025Q3

REPORT INFORMATION
  Report Type: Spontaneous
  Country: EU (occurrence: EU)
  Receive Date: 20250826
  Receipt Date: 20250826
  Transmission Date: 20251021
  Serious: Yes (Other)
  Sender: Haleon PLC
  Company Number: EU-LUNDBECK-DKLU2056011

PATIENT
  Sex: Female

DRUGS (16)
  1. FLUTICASONE [Suspect]
     Active Substance: FLUTICASONE
     Indication: Product used for unknown indication
  2. ACETAMINOPHEN\HYDROCODONE BITARTRATE [Suspect]
     Active Substance: ACETAMINOPHEN\HYDROCODONE BITARTRATE
     Indication: Product used for unknown indication
  3. DEXAMETHASONE [Suspect]
     Active Substance: DEXAMETHASONE
     Indication: Product used for unknown indication
  4. TEMOZOLOMIDE [Suspect]
     Active Substance: TEMOZOLOMIDE
     Indication: Product used for unknown indication
     Route: 048
  5. IRINOTECAN [Suspect]
     Active Substance: IRINOTECAN
     Indication: Product used for unknown indication
  6. LEVOTHYROXINE [Suspect]
     Active Substance: LEVOTHYROXINE
     Indication: Product used for unknown indication
  7. CITALOPRAM [Suspect]
     Active Substance: CITALOPRAM
     Indication: Product used for unknown indication
  8. TRAZODONE [Suspect]
     Active Substance: TRAZODONE HYDROCHLORIDE
     Indication: Product used for unknown indication
  9. PINDOLOL [Suspect]
     Active Substance: PINDOLOL
     Indication: Product used for unknown indication
  10. TOLTERODINE [Suspect]
     Active Substance: TOLTERODINE
     Indication: Product used for unknown indication
  11. BUPROPION [Suspect]
     Active Substance: BUPROPION
     Indication: Product used for unknown indication
  12. BEVACIZUMAB [Suspect]
     Active Substance: BEVACIZUMAB
     Indication: Product used for unknown indication
  13. SIMVASTATIN [Suspect]
     Active Substance: SIMVASTATIN
     Indication: Product used for unknown indication
  14. MEPHOBARBITAL\PHENYTOIN [Suspect]
     Active Substance: MEPHOBARBITAL\PHENYTOIN
     Indication: Product used for unknown indication
  15. OMEPRAZOLE [Suspect]
     Active Substance: OMEPRAZOLE
     Indication: Product used for unknown indication
     Route: 048
  16. FEXOFENADINE [Suspect]
     Active Substance: FEXOFENADINE HYDROCHLORIDE
     Indication: Product used for unknown indication

REACTIONS (6)
  - Sepsis [Unknown]
  - Neutrophil count abnormal [Unknown]
  - White blood cell count abnormal [Unknown]
  - Haemoglobin abnormal [Unknown]
  - Urinary tract infection [Unknown]
  - Oesophagitis [Unknown]
